FAERS Safety Report 4675648-X (Version None)
Quarter: 2005Q2

REPORT INFORMATION
  Report Type: 
  Country: None (occurrence: None)
  Receive Date: 20050527
  Receipt Date: 20050502
  Transmission Date: 20051028
  Serious: Yes (Hospitalization)
  Sender: FDA-Public Use
  Company Number: FR-BRISTOL-MYERS SQUIBB COMPANY-12954400

PATIENT
  Age: 53 Year
  Sex: Female

DRUGS (6)
  1. AXEPIM INJ 2 GM [Suspect]
     Route: 042
     Dates: start: 20050404, end: 20050410
  2. CIPROFLOXACIN [Suspect]
     Indication: SEPSIS
     Route: 042
     Dates: end: 20050410
  3. VFEND [Suspect]
     Indication: PROPHYLAXIS
     Route: 042
     Dates: start: 20050407, end: 20050409
  4. ARACYTINE [Suspect]
     Indication: MYELOID LEUKAEMIA
     Dates: start: 20021015, end: 20050403
  5. GLEEVEC [Suspect]
     Indication: MYELOID LEUKAEMIA
     Dates: start: 20020615, end: 20050403
  6. TARGOCID [Concomitant]
     Route: 030
     Dates: start: 20050404

REACTIONS (6)
  - ASPERGILLOSIS [None]
  - GENERAL PHYSICAL HEALTH DETERIORATION [None]
  - HEPATIC FAILURE [None]
  - LUNG DISORDER [None]
  - PYREXIA [None]
  - SCIATICA [None]
